FAERS Safety Report 24776816 (Version 1)
Quarter: 2024Q4

REPORT INFORMATION
  Report Type: Spontaneous
  Country: US (occurrence: None)
  Receive Date: 20241220
  Receipt Date: 20241220
  Transmission Date: 20250114
  Serious: Yes (unspecified)
  Sender: Public
  Company Number: None

PATIENT
  Age: 62 Year
  Sex: Male

DRUGS (1)
  1. GAMUNEX-C [Suspect]
     Active Substance: HUMAN IMMUNOGLOBULIN G

REACTIONS (9)
  - Infusion related reaction [None]
  - Pallor [None]
  - Hyperhidrosis [None]
  - Dyspnoea [None]
  - Nausea [None]
  - Dizziness [None]
  - Heart rate decreased [None]
  - Therapy interrupted [None]
  - Micturition urgency [None]
